FAERS Safety Report 8138571-4 (Version None)
Quarter: 2012Q1

REPORT INFORMATION
  Report Type: 
  Country: None (occurrence: None)
  Receive Date: 20120215
  Receipt Date: 20120203
  Transmission Date: 20120608
  Serious: Yes (Other)
  Sender: FDA-Public Use
  Company Number: US-ROCHE-790433

PATIENT
  Sex: Male

DRUGS (1)
  1. AVASTIN [Suspect]
     Indication: PRODUCT USED FOR UNKNOWN INDICATION
     Dosage: ROUTE: IVT
     Route: 031

REACTIONS (6)
  - EYE PAIN [None]
  - ENDOPHTHALMITIS [None]
  - EYE DISORDER [None]
  - PRODUCT QUALITY ISSUE [None]
  - VISUAL ACUITY REDUCED [None]
  - DEPOSIT EYE [None]
